FAERS Safety Report 25063950 (Version 1)
Quarter: 2025Q1

REPORT INFORMATION
  Report Type: Other
  Country: MY (occurrence: MY)
  Receive Date: 20250311
  Receipt Date: 20250311
  Transmission Date: 20250408
  Serious: Yes (Hospitalization)
  Sender: COREPHARMA LLC
  Company Number: MY-CorePharma LLC-2172679

PATIENT
  Age: 31 Year
  Sex: Female

DRUGS (2)
  1. AMLODIPINE BESYLATE [Suspect]
     Active Substance: AMLODIPINE BESYLATE
     Indication: Hypertension
  2. METOPROLOL [Suspect]
     Active Substance: METOPROLOL

REACTIONS (3)
  - BRASH syndrome [Recovered/Resolved]
  - Drug interaction [Unknown]
  - Metabolic acidosis [Recovered/Resolved]
